FAERS Safety Report 21938322 (Version 20)
Quarter: 2024Q2

REPORT INFORMATION
  Report Type: Spontaneous
  Country: US (occurrence: US)
  Receive Date: 20230201
  Receipt Date: 20240517
  Transmission Date: 20240716
  Serious: No
  Sender: FDA-Public Use
  Company Number: US-PFIZER INC-202101732338

PATIENT
  Age: 83 Year
  Sex: Female

DRUGS (4)
  1. IBRANCE [Suspect]
     Active Substance: PALBOCICLIB
     Indication: Breast cancer metastatic
     Dosage: TAKE ONE ONCE DAILY, FOR 14 DAYS FOLLOWED BY 7 DAYS OFF IN A 28 DAYS
     Route: 048
  2. IBRANCE [Suspect]
     Active Substance: PALBOCICLIB
     Dosage: TAKE ONE ONCE DAILY, FOR 14 DAYS FOLLOWED BY 14AYS OFF IN A 28 DAYS
     Route: 048
  3. IBRANCE [Suspect]
     Active Substance: PALBOCICLIB
     Dosage: TAKE ONE TABLET ONCE A DAY FOR 14 DAYS ON, FOLLOWED BY 7 DAYS OFF
     Route: 048
  4. IBRANCE [Suspect]
     Active Substance: PALBOCICLIB
     Dosage: TAKE ONE TABLET ONCE A DAY FOR 14 DAYS ON, FOLLOWED BY 14 DAYS OFF TREATMENT
     Route: 048

REACTIONS (1)
  - Off label use [Unknown]
